FAERS Safety Report 4878111-6 (Version None)
Quarter: 2006Q1

REPORT INFORMATION
  Report Type: 
  Country: None (occurrence: None)
  Receive Date: 20060109
  Receipt Date: 20051219
  Transmission Date: 20060701
  Serious: Yes (Death)
  Sender: FDA-Public Use
  Company Number: HP200500141

PATIENT
  Age: 80 Year
  Sex: Male

DRUGS (1)
  1. XENADERM (BALSALM OF PERU, TRYPSIN, CASTOR OIL) OINTMENT [Suspect]
     Indication: SKIN ULCER
     Dates: start: 20050301, end: 20051101

REACTIONS (1)
  - DRUG INEFFECTIVE [None]
